FAERS Safety Report 4977540-X (Version None)
Quarter: 2006Q2

REPORT INFORMATION
  Report Type: 
  Country: None (occurrence: None)
  Receive Date: 20060414
  Receipt Date: 20060329
  Transmission Date: 20061013
  Serious: Yes (Hospitalization)
  Sender: FDA-Public Use
  Company Number: S06-NLD-01354-01

PATIENT
  Age: 46 Year
  Sex: Female

DRUGS (11)
  1. ESCITALOPRAM OXALATE [Suspect]
     Indication: DEPRESSION
     Dates: start: 20060227
  2. CLORAZEPATE DIPOTASSIUM [Concomitant]
  3. GLYCERYL TRINITRATE [Concomitant]
  4. FOLIC ACID [Concomitant]
  5. CARBASALATE CALCIUM [Concomitant]
  6. ISOSORBIDE MONONITRATE [Concomitant]
  7. SIMVASTATIN [Concomitant]
  8. RANITIDINE [Concomitant]
  9. INSULIN [Concomitant]
  10. INSULIN GLARGINE [Concomitant]
  11. DILTIAZEM HYDROCHLORIDE [Concomitant]

REACTIONS (4)
  - ABNORMAL BEHAVIOUR [None]
  - BLOOD GLUCOSE ABNORMAL [None]
  - CONVULSION [None]
  - HYPOGLYCAEMIA [None]
